FAERS Safety Report 7482710-5 (Version None)
Quarter: 2011Q2

REPORT INFORMATION
  Report Type: 
  Country: None (occurrence: None)
  Receive Date: 20110516
  Receipt Date: 20091230
  Transmission Date: 20111010
  Serious: Yes (Hospitalization, Other)
  Sender: FDA-Public Use
  Company Number: PHHY2009DE68624

PATIENT
  Sex: Female

DRUGS (3)
  1. IBUPROFEN [Concomitant]
     Dosage: 200 (UNIT UNKNOWN)
  2. EXTAVIA [Suspect]
     Route: 058
     Dates: start: 20091128
  3. BETA BLOCKING AGENTS [Concomitant]

REACTIONS (9)
  - PAIN IN EXTREMITY [None]
  - HOT FLUSH [None]
  - GASTRITIS [None]
  - NERVE COMPRESSION [None]
  - DEAFNESS [None]
  - ABDOMINAL DISCOMFORT [None]
  - CONTUSION [None]
  - MULTIPLE SCLEROSIS RELAPSE [None]
  - PERIPHERAL VASCULAR DISORDER [None]
